FAERS Safety Report 20491772 (Version 2)
Quarter: 2022Q1

REPORT INFORMATION
  Report Type: Spontaneous
  Country: DE (occurrence: DE)
  Receive Date: 20220218
  Receipt Date: 20220304
  Transmission Date: 20220423
  Serious: Yes (Hospitalization, Other)
  Sender: FDA-Public Use
  Company Number: DE-002147023-NVSC2022DE032920

PATIENT

DRUGS (6)
  1. RUXOLITINIB [Suspect]
     Active Substance: RUXOLITINIB
     Indication: Polycythaemia vera
     Dosage: UNK (10-0-5)
     Route: 065
  2. RUXOLITINIB [Suspect]
     Active Substance: RUXOLITINIB
     Indication: Myeloproliferative neoplasm
     Dosage: UNK, (10-0-10)
     Route: 065
     Dates: start: 201707
  3. RUXOLITINIB [Suspect]
     Active Substance: RUXOLITINIB
     Dosage: UNK (10-0-5)
     Route: 065
     Dates: start: 202201
  4. ASPIRIN [Concomitant]
     Active Substance: ASPIRIN
     Indication: Product used for unknown indication
     Dosage: UNK
     Route: 065
  5. LEVOTHYROXINE [Concomitant]
     Active Substance: LEVOTHYROXINE
     Indication: Product used for unknown indication
     Dosage: UNK
     Route: 065
  6. PANTOPRAZOLE [Concomitant]
     Active Substance: PANTOPRAZOLE
     Indication: Product used for unknown indication
     Dosage: UNK
     Route: 065

REACTIONS (4)
  - Lower limb fracture [Recovering/Resolving]
  - Immunosuppression [Recovering/Resolving]
  - Fall [Unknown]
  - Thrombocytosis [Recovering/Resolving]

NARRATIVE: CASE EVENT DATE: 20211201
